FAERS Safety Report 9123547 (Version 1)
Quarter: 2013Q1

REPORT INFORMATION
  Report Type: Spontaneous
  Country: US (occurrence: None)
  Receive Date: 20130131
  Receipt Date: 20130131
  Transmission Date: 20140127
  Serious: Yes (Disabling)
  Sender: FDA-Public Use
  Company Number: 001469791A

PATIENT
  Age: 37 Year
  Sex: Female

DRUGS (3)
  1. PROACTIV RENEWING CLEANSER [Suspect]
     Indication: ACNE
     Dosage: ONCE DERMAL DAILY
     Dates: start: 20130103, end: 20130108
  2. PROACTIV REPAIRING TREATMENT [Suspect]
     Indication: ACNE
     Dosage: ONCE DERMAL DAILY
     Dates: start: 20130103, end: 20130108
  3. MULTI VITAMIN [Concomitant]

REACTIONS (10)
  - Skin burning sensation [None]
  - Skin irritation [None]
  - Ocular hyperaemia [None]
  - Rash macular [None]
  - Contusion [None]
  - Headache [None]
  - Vision blurred [None]
  - Eye pain [None]
  - Injury corneal [None]
  - Accidental exposure to product [None]
